FAERS Safety Report 12057544 (Version 1)
Quarter: 2016Q1

REPORT INFORMATION
  Report Type: Report from Study
  Country: US (occurrence: US)
  Receive Date: 20160209
  Receipt Date: 20160209
  Transmission Date: 20160526
  Serious: No
  Sender: FDA-Public Use
  Company Number: US-ABBVIE-15P-163-1483660-00

PATIENT
  Age: 41 Year
  Sex: Female

DRUGS (2)
  1. HUMIRA [Suspect]
     Active Substance: ADALIMUMAB
     Indication: RHEUMATOID ARTHRITIS
     Dosage: MG WEEKLY FOR ONE MONTH AND THEN 40MG EVERY OTHER
     Route: 065
     Dates: start: 20150823
  2. HUMIRA [Suspect]
     Active Substance: ADALIMUMAB
     Dosage: 40MG WEEKLY FOR ONE MONTH AND THEN 40MG EVERY OTHER
     Route: 065
     Dates: end: 20150901

REACTIONS (2)
  - Fatigue [Not Recovered/Not Resolved]
  - Herpes zoster [Not Recovered/Not Resolved]

NARRATIVE: CASE EVENT DATE: 20150823
